FAERS Safety Report 17271660 (Version 3)
Quarter: 2020Q1

REPORT INFORMATION
  Report Type: Report from Study
  Country: DE (occurrence: DE)
  Receive Date: 20200115
  Receipt Date: 20200228
  Transmission Date: 20200409
  Serious: Yes (Death)
  Sender: FDA-Public Use
  Company Number: DE-ROCHE-2517298

PATIENT
  Age: 41 Year
  Sex: Male
  Weight: 74 kg

DRUGS (9)
  1. DEKRISTOL [Concomitant]
     Active Substance: CHOLECALCIFEROL
     Indication: VITAMIN D DEFICIENCY
     Route: 048
     Dates: start: 20141222
  2. AERIUS (DESLORATADINE) [Concomitant]
     Active Substance: DESLORATADINE
     Indication: PROPHYLAXIS
     Route: 048
     Dates: start: 20190411, end: 20190413
  3. PREDNISOLON [PREDNISOLONE] [Concomitant]
     Active Substance: PREDNISOLONE
     Indication: PROPHYLAXIS
     Route: 042
     Dates: start: 20190426, end: 20190426
  4. AERIUS (DESLORATADINE) [Concomitant]
     Active Substance: DESLORATADINE
     Indication: PROPHYLAXIS
     Route: 048
     Dates: start: 20190425, end: 20190427
  5. FAMPYRA [Concomitant]
     Active Substance: DALFAMPRIDINE
     Dosage: INDICATION: IMPROVEMENT OF THE WALKING DISTANCE
     Route: 048
     Dates: start: 20120112
  6. RANITIDIN [Concomitant]
     Active Substance: RANITIDINE HYDROCHLORIDE
     Indication: PROPHYLAXIS
     Route: 048
     Dates: start: 20190425, end: 20190427
  7. OCRELIZUMAB. [Suspect]
     Active Substance: OCRELIZUMAB
     Indication: MULTIPLE SCLEROSIS
     Route: 042
     Dates: start: 20190412
  8. RANITIDIN [Concomitant]
     Active Substance: RANITIDINE HYDROCHLORIDE
     Indication: PROPHYLAXIS
     Route: 048
     Dates: start: 20190411, end: 20190413
  9. PREDNISOLON [PREDNISOLONE] [Concomitant]
     Active Substance: PREDNISOLONE
     Indication: PROPHYLAXIS
     Route: 042
     Dates: start: 20190412, end: 20190412

REACTIONS (1)
  - Death [Fatal]

NARRATIVE: CASE EVENT DATE: 20200106
